FAERS Safety Report 25342975 (Version 1)
Quarter: 2025Q2

REPORT INFORMATION
  Report Type: Spontaneous
  Country: US (occurrence: US)
  Receive Date: 20250521
  Receipt Date: 20250521
  Transmission Date: 20250716
  Serious: No
  Sender: AMGEN
  Company Number: US-AMGEN-USASP2025096716

PATIENT
  Age: 34 Year
  Sex: Male

DRUGS (2)
  1. KRYSTEXXA [Suspect]
     Active Substance: PEGLOTICASE
     Indication: Gout
     Route: 040
  2. KRYSTEXXA [Suspect]
     Active Substance: PEGLOTICASE
     Route: 040

REACTIONS (1)
  - Blood uric acid increased [Unknown]
